FAERS Safety Report 7708429-0 (Version None)
Quarter: 2011Q3

REPORT INFORMATION
  Report Type: 
  Country: None (occurrence: None)
  Receive Date: 20110825
  Receipt Date: 20110815
  Transmission Date: 20111222
  Serious: Yes (Hospitalization, Other)
  Sender: FDA-Public Use
  Company Number: US-BAYER-2011-022339

PATIENT
  Age: 23 Year
  Sex: Female
  Weight: 62.132 kg

DRUGS (1)
  1. YAZ [Suspect]
     Indication: ACNE
     Dosage: UNK
     Dates: start: 20060101, end: 20060831

REACTIONS (3)
  - THROMBOSIS [None]
  - ABORTION SPONTANEOUS [None]
  - MENTAL DISORDER [None]
